FAERS Safety Report 23813471 (Version 1)
Quarter: 2024Q2

REPORT INFORMATION
  Report Type: Spontaneous
  Country: ES (occurrence: ES)
  Receive Date: 20240503
  Receipt Date: 20240503
  Transmission Date: 20240715
  Serious: Yes (Death)
  Sender: FDA-Public Use
  Company Number: None

PATIENT
  Age: 47 Year
  Sex: Female

DRUGS (10)
  1. TRAZODONE HYDROCHLORIDE [Interacting]
     Active Substance: TRAZODONE HYDROCHLORIDE
     Indication: Pain
     Dates: start: 2023, end: 20240226
  2. PREGABALIN [Interacting]
     Active Substance: PREGABALIN
     Indication: Pain
     Dates: start: 2023, end: 20240226
  3. LEVOFLOXACIN [Interacting]
     Active Substance: LEVOFLOXACIN
     Indication: Respiratory tract infection
     Dates: start: 20240225, end: 20240226
  4. AMITRIPTYLINE [Interacting]
     Active Substance: AMITRIPTYLINE
     Indication: Pain
     Dates: start: 2023, end: 20240226
  5. TRAMADOL HYDROCHLORIDE [Interacting]
     Active Substance: TRAMADOL HYDROCHLORIDE
     Indication: Pain
     Dosage: STRENGTH: 50 MG HARD CAPSULES EFG, 20 CAPSULES
     Dates: start: 20240213, end: 20240226
  6. TAPENTADOL [Interacting]
     Active Substance: TAPENTADOL
     Indication: Pain
     Dosage: STRENGTH: 100 MG PROLONGED RELEASE TABLETS EFG, 60 TABLETS
     Dates: start: 20240205, end: 20240226
  7. LIDOCAINE [Interacting]
     Active Substance: LIDOCAINE
     Indication: Pain
     Dosage: STRENGTH: 20 MG/ML SOLUTION FOR INJECTION EFG, 100 AMPOULES X 10 ML
     Dates: start: 20240216, end: 20240223
  8. DIAZEPAM [Interacting]
     Active Substance: DIAZEPAM
     Indication: Pain
     Dates: start: 2023, end: 20240226
  9. METHOCARBAMOL [Interacting]
     Active Substance: METHOCARBAMOL
     Indication: Pain
     Dates: start: 2023, end: 20240226
  10. CARBAMAZEPINE [Interacting]
     Active Substance: CARBAMAZEPINE
     Indication: Pain
     Dates: start: 2023, end: 20240226

REACTIONS (1)
  - Sudden death [Fatal]

NARRATIVE: CASE EVENT DATE: 20240226
